FAERS Safety Report 18123207 (Version 1)
Quarter: 2020Q3

REPORT INFORMATION
  Report Type: Spontaneous
  Country: IT (occurrence: IT)
  Receive Date: 20200807
  Receipt Date: 20200807
  Transmission Date: 20201103
  Serious: Yes (Death)
  Sender: FDA-Public Use
  Company Number: IT-TEVA-2020-IT-1810167

PATIENT
  Age: 72 Year
  Sex: Female

DRUGS (10)
  1. CARDURA [Concomitant]
     Active Substance: DOXAZOSIN MESYLATE
     Dosage: 2MG
     Route: 048
  2. TICLOPIDINE HYDROCHLORIDE. [Concomitant]
     Active Substance: TICLOPIDINE HYDROCHLORIDE
     Dosage: 500MG
     Route: 048
  3. METFORMIN HYDROCHLORIDE. [Suspect]
     Active Substance: METFORMIN HYDROCHLORIDE
     Indication: TYPE 2 DIABETES MELLITUS
     Dosage: 850MG
     Route: 048
     Dates: start: 20160501, end: 20200601
  4. ZITROMAX 500 MG COMPRESSE RIVESTITE CON FILM [Suspect]
     Active Substance: AZITHROMYCIN
     Indication: INFECTION
     Dosage: 500MG
     Route: 048
     Dates: start: 20200530, end: 20200601
  5. ENTACT 20 MG COMPRESSE RIVESTITE CON FILM [Concomitant]
     Dosage: 20MG
     Route: 048
  6. LOBIVON 5 MG COMPRESSE [Concomitant]
     Active Substance: NEBIVOLOL HYDROCHLORIDE
     Dosage: 2.5MG
     Route: 048
  7. BIVIS 40 MG/10 MG COMPRESSE RIVESTITE CON FILM [Concomitant]
     Active Substance: AMLODIPINE BESYLATE\OLMESARTAN MEDOXOMIL
     Dosage: 1 DOSAGE FORM
     Route: 048
  8. ZYLORIC 100 MG COMPRESSE [Suspect]
     Active Substance: ALLOPURINOL
     Indication: HYPERURICAEMIA
     Dosage: 100MG
     Route: 048
     Dates: start: 20190601, end: 20200601
  9. ACTRAPID 40 INTERNATIONAL UNITS/ML SOLUTION FOR INJECTION [Concomitant]
     Dosage: 70 IU
     Route: 058
  10. LASIX [Concomitant]
     Active Substance: FUROSEMIDE
     Dosage: 25MG
     Route: 048

REACTIONS (1)
  - Drug reaction with eosinophilia and systemic symptoms [Fatal]

NARRATIVE: CASE EVENT DATE: 20200601
